FAERS Safety Report 8396200-9 (Version None)
Quarter: 2012Q2

REPORT INFORMATION
  Report Type: 
  Country: None (occurrence: None)
  Receive Date: 20120530
  Receipt Date: 20120523
  Transmission Date: 20120825
  Serious: Yes (Hospitalization)
  Sender: FDA-Public Use
  Company Number: FR-GLAXOSMITHKLINE-B0803227A

PATIENT
  Sex: Female

DRUGS (13)
  1. DIGOXIN [Concomitant]
     Dosage: .125MG PER DAY
     Route: 048
  2. NITROGLYCERIN [Concomitant]
     Indication: CORONARY ARTERY DISEASE
     Route: 065
  3. RULID [Concomitant]
     Indication: LUNG INFECTION
     Route: 065
     Dates: start: 20120319
  4. AMLODIPINE BESYLATE AND OLMESARTAN MEDOXOMIL [Concomitant]
     Dosage: 1UNIT PER DAY
     Route: 048
  5. LASIX [Suspect]
     Indication: PRODUCT USED FOR UNKNOWN INDICATION
     Dosage: 20MG THREE TIMES PER DAY
     Route: 048
     Dates: start: 20120319
  6. ESIDRIX [Suspect]
     Indication: PRODUCT USED FOR UNKNOWN INDICATION
     Dosage: 12.5MG IN THE MORNING
     Route: 048
     Dates: end: 20110320
  7. ACETAMINOPHEN [Concomitant]
     Route: 065
  8. STRESAM [Concomitant]
     Dosage: 50MG PER DAY
     Route: 048
     Dates: end: 20120320
  9. PENTOXIFYLLINE [Concomitant]
     Route: 048
  10. AUGMENTIN [Concomitant]
     Indication: LUNG INFECTION
     Route: 065
     Dates: start: 20120314, end: 20120319
  11. PAROXETINE HYDROCHLORIDE [Suspect]
     Indication: PRODUCT USED FOR UNKNOWN INDICATION
     Dosage: 10MG IN THE MORNING
     Route: 048
     Dates: end: 20120320
  12. OXAZEPAM [Concomitant]
     Dosage: 10MG PER DAY
     Route: 048
     Dates: end: 20120320
  13. ACTONEL [Concomitant]
     Route: 065

REACTIONS (13)
  - HYPERPROTEINAEMIA [None]
  - METABOLIC ALKALOSIS [None]
  - DEHYDRATION [None]
  - HAEMOCONCENTRATION [None]
  - BLOOD LACTIC ACID INCREASED [None]
  - MUCOSAL DRYNESS [None]
  - HYPONATRAEMIA [None]
  - HYPOKALAEMIA [None]
  - RESPIRATORY ALKALOSIS [None]
  - HYPOXIA [None]
  - FALL [None]
  - RENAL FAILURE [None]
  - DRUG INTERACTION [None]
